FAERS Safety Report 20602781 (Version 5)
Quarter: 2025Q4

REPORT INFORMATION
  Report Type: Spontaneous
  Country: US (occurrence: US)
  Receive Date: 20220316
  Receipt Date: 20251105
  Transmission Date: 20260118
  Serious: Yes (Hospitalization, Other)
  Sender: PFIZER
  Company Number: US-PFIZER INC-202200397724

PATIENT
  Age: 61 Year
  Sex: Female
  Weight: 86.18 kg

DRUGS (5)
  1. XELJANZ XR [Suspect]
     Active Substance: TOFACITINIB CITRATE
     Indication: Rheumatoid arthritis
     Dosage: 11 MG, 1X/DAY
     Dates: end: 20211202
  2. XELJANZ XR [Suspect]
     Active Substance: TOFACITINIB CITRATE
     Dosage: 11 MG, 1X/DAY
     Dates: start: 20220314
  3. MEDROL [Concomitant]
     Active Substance: METHYLPREDNISOLONE
  4. METHOTREXATE [Concomitant]
     Active Substance: METHOTREXATE
     Dosage: EVERY MONDAY MORNING ONCE A WEEK
  5. METHYLPREDNISOLONE [Concomitant]
     Active Substance: METHYLPREDNISOLONE
     Dosage: UNK, 1X/DAY

REACTIONS (14)
  - Pyrexia [Unknown]
  - Spinal decompression [Recovering/Resolving]
  - Feeling abnormal [Not Recovered/Not Resolved]
  - Fall [Unknown]
  - Hip fracture [Unknown]
  - Humerus fracture [Unknown]
  - Tibia fracture [Unknown]
  - Peripheral swelling [Unknown]
  - Pain [Unknown]
  - Gait disturbance [Unknown]
  - Osteoporosis [Unknown]
  - Pain in extremity [Not Recovered/Not Resolved]
  - Dysstasia [Unknown]
  - Exostosis [Unknown]

NARRATIVE: CASE EVENT DATE: 20220103
